FAERS Safety Report 16468924 (Version 1)
Quarter: 2019Q2

REPORT INFORMATION
  Report Type: Spontaneous
  Country: US (occurrence: US)
  Receive Date: 20190624
  Receipt Date: 20190624
  Transmission Date: 20190711
  Serious: No
  Sender: FDA-Public Use
  Company Number: US-PFIZER INC-2019258217

PATIENT
  Sex: Female

DRUGS (1)
  1. XELJANZ [Suspect]
     Active Substance: TOFACITINIB CITRATE
     Indication: PSORIATIC ARTHROPATHY
     Dosage: UNK
     Dates: start: 20190525

REACTIONS (7)
  - Decreased interest [Unknown]
  - Depressed mood [Unknown]
  - Irritability [Unknown]
  - Localised infection [Unknown]
  - Insomnia [Unknown]
  - Mood altered [Unknown]
  - Fatigue [Unknown]
